FAERS Safety Report 6355773-8 (Version None)
Quarter: 2009Q3

REPORT INFORMATION
  Report Type: 
  Country: None (occurrence: None)
  Receive Date: 20090911
  Receipt Date: 20090911
  Transmission Date: 20100115
  Serious: Yes (Hospitalization)
  Sender: FDA-Public Use
  Company Number: None

PATIENT
  Age: 51 Year
  Sex: Female
  Weight: 55.1 kg

DRUGS (9)
  1. CISAPRIDE [Suspect]
     Indication: GASTROINTESTINAL HYPOMOTILITY
     Dosage: 10MG, QID, PO
     Route: 048
     Dates: start: 20090530
  2. CISAPRIDE [Suspect]
     Indication: GASTROINTESTINAL MOTILITY DISORDER
     Dosage: 10MG, QID, PO
     Route: 048
     Dates: start: 20090530
  3. ZOLOFT [Concomitant]
  4. KEPPRA [Concomitant]
  5. PROTONIX [Concomitant]
  6. ULTRAM [Concomitant]
  7. BENEFIBER [Concomitant]
  8. MYLANTA [Concomitant]
  9. TYLENOL (CAPLET) [Concomitant]

REACTIONS (11)
  - ABDOMINAL DISTENSION [None]
  - BLOOD MAGNESIUM DECREASED [None]
  - DEHYDRATION [None]
  - DIARRHOEA [None]
  - FALL [None]
  - ILEUS [None]
  - JOINT INJURY [None]
  - RECTAL HAEMORRHAGE [None]
  - RENAL FAILURE [None]
  - SEPSIS [None]
  - WHEEZING [None]
